FAERS Safety Report 6658629-6 (Version None)
Quarter: 2010Q1

REPORT INFORMATION
  Report Type: 
  Country: None (occurrence: None)
  Receive Date: 20100330
  Receipt Date: 20100325
  Transmission Date: 20100710
  Serious: Yes (Hospitalization)
  Sender: FDA-Public Use
  Company Number: US-BRISTOL-MYERS SQUIBB COMPANY-15036072

PATIENT
  Age: 83 Year
  Sex: Female
  Weight: 67 kg

DRUGS (9)
  1. CISPLATIN [Suspect]
     Indication: OESOPHAGEAL SQUAMOUS CELL CARCINOMA
     Dosage: LAST ADMIN DATE:17-MAR-2010, COURSE = 4 WEEKS; TOTAL DOSE ADMIN THIS COURSE= 166MG
     Route: 042
     Dates: start: 20100222
  2. TAXOL [Suspect]
     Indication: OESOPHAGEAL SQUAMOUS CELL CARCINOMA
     Dosage: LAST ADMIN DATE: 17-MAR-2010,COURSE=4WEEKS; TOTAL DOSE ADMIN THIS COURSE = 332 MG
     Route: 042
     Dates: start: 20100222
  3. RADIATION THERAPY [Suspect]
     Indication: OESOPHAGEAL SQUAMOUS CELL CARCINOMA
     Dosage: 1DF= TOTAL DOSE ADMIN TILL 22-MAR-2010 = 39.6GY, NO. OF FRAC:50, THERAPY HELD SINCE 23-MAR-2010
  4. ATENOLOL [Concomitant]
     Dosage: TABS
  5. CHLOROTHIAZIDE [Concomitant]
     Dosage: TABS
  6. CALCIUM CARBONATE [Concomitant]
     Dosage: 1TABS
  7. OMEGA 3 FATTY ACID [Concomitant]
  8. OMEPRAZOLE [Concomitant]
  9. VITAMIN D3 [Concomitant]

REACTIONS (7)
  - DECREASED APPETITE [None]
  - DEHYDRATION [None]
  - DIARRHOEA [None]
  - HYPOKALAEMIA [None]
  - HYPOMAGNESAEMIA [None]
  - NEUTROPHIL COUNT DECREASED [None]
  - PLATELET COUNT DECREASED [None]
